FAERS Safety Report 16416697 (Version 1)
Quarter: 2019Q2

REPORT INFORMATION
  Report Type: Spontaneous
  Country: FR (occurrence: FR)
  Receive Date: 20190611
  Receipt Date: 20190611
  Transmission Date: 20190711
  Serious: Yes (Hospitalization)
  Sender: FDA-Public Use
  Company Number: FR-PFIZER INC-2019242359

PATIENT
  Age: 40 Year
  Sex: Female
  Weight: 55 kg

DRUGS (3)
  1. MINIDRIL [Suspect]
     Active Substance: ETHINYL ESTRADIOL\LEVONORGESTREL
     Indication: CONTRACEPTION
     Dosage: 21 DF, MONTHLY
     Route: 048
     Dates: end: 20190510
  2. EXACYL [Suspect]
     Active Substance: TRANEXAMIC ACID
     Indication: MENORRHAGIA
     Route: 048
     Dates: start: 201904, end: 201904
  3. TARDYFERON [Concomitant]
     Active Substance: FERROUS SULFATE
     Indication: ANAEMIA
     Dosage: 1 DF, 1X/DAY
     Route: 048
     Dates: end: 20190427

REACTIONS (3)
  - Dyspnoea exertional [Recovering/Resolving]
  - Myocardial ischaemia [Not Recovered/Not Resolved]
  - Congestive cardiomyopathy [Not Recovered/Not Resolved]

NARRATIVE: CASE EVENT DATE: 201902
